FAERS Safety Report 6295152-5 (Version None)
Quarter: 2009Q3

REPORT INFORMATION
  Report Type: 
  Country: None (occurrence: None)
  Receive Date: 20090803
  Receipt Date: 20090723
  Transmission Date: 20100115
  Serious: Yes (Life-Threatening, Hospitalization)
  Sender: FDA-Public Use
  Company Number: FR-PFIZER INC-2009244554

PATIENT
  Age: 22 Year

DRUGS (1)
  1. XANAX [Suspect]
     Dosage: 2 BLISTER STRIPS IN ONE SINGLE INTAKE
     Route: 048
     Dates: start: 20090709, end: 20090709

REACTIONS (1)
  - ALTERED STATE OF CONSCIOUSNESS [None]
